FAERS Safety Report 8522677 (Version 2)
Quarter: 2013Q2

REPORT INFORMATION
  Report Type: Spontaneous
  Country: JP (occurrence: JP)
  Receive Date: 20120419
  Receipt Date: 20130404
  Transmission Date: 20140414
  Serious: Yes (Hospitalization)
  Sender: FDA-Public Use
  Company Number: JP-GLAXOSMITHKLINE-B0782258A

PATIENT
  Age: 67 Year
  Sex: Female

DRUGS (4)
  1. PAXIL [Suspect]
     Indication: PAIN
     Dosage: 20MG PER DAY
     Route: 048
     Dates: start: 20110616, end: 20110626
  2. LOXONIN [Concomitant]
     Indication: PAIN
     Dosage: 60MG PER DAY
     Route: 048
     Dates: start: 20110616, end: 20110622
  3. METHYCOBAL [Concomitant]
     Indication: PAIN
     Dosage: 500MCG THREE TIMES PER DAY
     Route: 048
     Dates: start: 20110616
  4. VICCLOX [Concomitant]
     Indication: HERPES ZOSTER
     Dosage: 250MG THREE TIMES PER DAY
     Route: 042
     Dates: start: 20110616, end: 20110624

REACTIONS (13)
  - Hyponatraemia [Recovered/Resolved]
  - Malaise [Unknown]
  - Muscular weakness [Unknown]
  - Off label use [Unknown]
  - Inappropriate antidiuretic hormone secretion [Unknown]
  - Altered state of consciousness [Recovered/Resolved]
  - Urinary retention [Unknown]
  - Nausea [Unknown]
  - Dizziness [Unknown]
  - Blood osmolarity decreased [Unknown]
  - Blood antidiuretic hormone abnormal [Unknown]
  - Urine osmolarity increased [Unknown]
  - Urine sodium increased [Unknown]
